FAERS Safety Report 5727267-1 (Version None)
Quarter: 2008Q2

REPORT INFORMATION
  Report Type: 
  Country: None (occurrence: None)
  Receive Date: 20080505
  Receipt Date: 20080423
  Transmission Date: 20081010
  Serious: Yes (Other)
  Sender: FDA-Public Use
  Company Number: PHHY2008NO05292

PATIENT
  Age: 28 Year
  Sex: Male

DRUGS (2)
  1. SANDIMMUNE [Suspect]
     Indication: TRANSPLANT
     Dosage: 75 MG, BID
  2. PREDNISOLONE [Concomitant]
     Indication: TRANSPLANT
     Dosage: 2.5 MG/DAY

REACTIONS (5)
  - CATARACT [None]
  - CORNEAL LESION [None]
  - RETINAL DEGENERATION [None]
  - RETINAL DEPIGMENTATION [None]
  - SCHIMKE IMMUNOOSSEOUS DYSPLASIA [None]
